FAERS Safety Report 12640648 (Version 1)
Quarter: 2016Q3

REPORT INFORMATION
  Report Type: Spontaneous
  Country: US (occurrence: US)
  Receive Date: 20160810
  Receipt Date: 20160810
  Transmission Date: 20161109
  Serious: No
  Sender: FDA-Public Use
  Company Number: US-BEH-2016072076

PATIENT
  Sex: Female
  Weight: 68.27 kg

DRUGS (34)
  1. LIDOCAINE/PRILOCAINE [Concomitant]
     Active Substance: LIDOCAINE\PRILOCAINE
  2. PROMETHAZINE [Concomitant]
     Active Substance: PROMETHAZINE\PROMETHAZINE HYDROCHLORIDE
  3. SYNTHROID [Concomitant]
     Active Substance: LEVOTHYROXINE SODIUM
  4. AMBIEN [Concomitant]
     Active Substance: ZOLPIDEM TARTRATE
  5. CEFUROXIME. [Concomitant]
     Active Substance: CEFUROXIME
  6. VITAMIN D [Concomitant]
     Active Substance: CHOLECALCIFEROL
  7. VITAMIN B6 [Concomitant]
     Active Substance: PYRIDOXINE HYDROCHLORIDE
  8. ACETAMINOPHEN. [Concomitant]
     Active Substance: ACETAMINOPHEN
  9. PYRIDIUM [Concomitant]
     Active Substance: PHENAZOPYRIDINE
  10. HYDROCORTISONE. [Concomitant]
     Active Substance: HYDROCORTISONE
  11. XANAX [Concomitant]
     Active Substance: ALPRAZOLAM
  12. VITAMIN C [Concomitant]
     Active Substance: ASCORBIC ACID
  13. HIZENTRA [Suspect]
     Active Substance: HUMAN IMMUNOGLOBULIN G
     Dosage: UNK
     Route: 058
  14. DIPHENHYDRAMINE. [Concomitant]
     Active Substance: DIPHENHYDRAMINE
  15. PREDNISONE. [Concomitant]
     Active Substance: PREDNISONE
  16. VALTREX [Concomitant]
     Active Substance: VALACYCLOVIR HYDROCHLORIDE
  17. PROBIOTIC                          /06395501/ [Concomitant]
     Active Substance: BIFIDOBACTERIUM ANIMALIS SUBSP. LACTIS
  18. GINGER                             /01646602/ [Concomitant]
  19. GABAPENTIN. [Concomitant]
     Active Substance: GABAPENTIN
  20. INFED [Concomitant]
     Active Substance: IRON DEXTRAN
  21. HIZENTRA [Suspect]
     Active Substance: HUMAN IMMUNOGLOBULIN G
     Indication: COMBINED IMMUNODEFICIENCY
     Route: 058
  22. OXYCODONE [Concomitant]
     Active Substance: OXYCODONE
  23. VAGIFEM [Concomitant]
     Active Substance: ESTRADIOL
  24. DURAGESIC [Concomitant]
     Active Substance: FENTANYL
  25. MACROBID [Concomitant]
     Active Substance: NITROFURANTOIN\NITROFURANTOIN MONOHYDRATE
  26. PEPCID                             /00305201/ [Concomitant]
     Active Substance: ALUMINUM HYDROXIDE\MAGNESIUM CARBONATE
  27. DILTIAZEM. [Concomitant]
     Active Substance: DILTIAZEM
  28. FORTEO [Concomitant]
     Active Substance: TERIPARATIDE
  29. COLCRYS [Concomitant]
     Active Substance: COLCHICINE
  30. PERCOCET                           /00446701/ [Concomitant]
     Active Substance: ACETAMINOPHEN\OXYCODONE HYDROCHLORIDE\OXYCODONE TEREPHTHALATE
  31. HIZENTRA [Suspect]
     Active Substance: HUMAN IMMUNOGLOBULIN G
     Dosage: 14 G, QW
     Route: 058
     Dates: start: 20110207
  32. EPIPEN [Concomitant]
     Active Substance: EPINEPHRINE
  33. DIGESTIVE ENZYME [Concomitant]
     Active Substance: UNSPECIFIED INGREDIENT
  34. FLEXERIL [Concomitant]
     Active Substance: CYCLOBENZAPRINE HYDROCHLORIDE

REACTIONS (1)
  - Infusion site haemorrhage [Unknown]
